FAERS Safety Report 21706928 (Version 1)
Quarter: 2022Q4

REPORT INFORMATION
  Report Type: Report from Study
  Country: PR (occurrence: PR)
  Receive Date: 20221209
  Receipt Date: 20221209
  Transmission Date: 20230113
  Serious: No
  Sender: FDA-Public Use
  Company Number: PR-ABBVIE-4192825

PATIENT
  Sex: Female
  Weight: 83.007 kg

DRUGS (5)
  1. HUMIRA [Suspect]
     Active Substance: ADALIMUMAB
     Indication: Rheumatoid arthritis
     Dosage: 40MG/0.8ML
     Route: 058
     Dates: start: 20180628
  2. HUMIRA [Suspect]
     Active Substance: ADALIMUMAB
     Dosage: 40MG/0.4ML/ EVENTS OF COUGH AND PHELGM WAS RECOVERED ON AN UNKNOWN DATE AND MONTH IN 2022
     Route: 058
     Dates: end: 202207
  3. MODERNA COVID-19 VACCINE [Concomitant]
     Active Substance: ELASOMERAN
     Indication: COVID-19 immunisation
     Dosage: 2ND DOSE/ONCE
     Route: 030
     Dates: start: 20210414, end: 20210414
  4. MODERNA COVID-19 VACCINE [Concomitant]
     Active Substance: ELASOMERAN
     Indication: COVID-19 immunisation
     Dosage: 3RD DOSE/ONCE
     Route: 030
     Dates: start: 20210914, end: 20210914
  5. MODERNA COVID-19 VACCINE [Concomitant]
     Active Substance: ELASOMERAN
     Indication: COVID-19 immunisation
     Dosage: 1ST DOSE/ONCE
     Route: 030
     Dates: start: 20210512, end: 20210512

REACTIONS (5)
  - Cough [Recovered/Resolved]
  - Psoriasis [Not Recovered/Not Resolved]
  - Productive cough [Recovered/Resolved]
  - Pain [Not Recovered/Not Resolved]
  - Product prescribing issue [Unknown]

NARRATIVE: CASE EVENT DATE: 20220801
